FAERS Safety Report 4279449-6 (Version None)
Quarter: 2004Q1

REPORT INFORMATION
  Report Type: 
  Country: None (occurrence: None)
  Receive Date: 20040123
  Receipt Date: 20040113
  Transmission Date: 20041129
  Serious: Yes (Hospitalization)
  Sender: FDA-Public Use
  Company Number: NO-JNJFOC-20040102364

PATIENT
  Age: 51 Year
  Sex: Male

DRUGS (9)
  1. REMICADE [Suspect]
     Indication: ANKYLOSING SPONDYLITIS
     Dosage: 400 MG, INTRAVENOUS
     Route: 042
     Dates: start: 20031124, end: 20031208
  2. COAPROVEL (KARVEA HCT) TABLETS [Suspect]
     Indication: ANTIINFLAMMATORY THERAPY
     Dosage: 1 IN 1 DAY, ORAL
     Route: 048
  3. DICLOFENAC SODIUM [Suspect]
     Indication: ANTIINFLAMMATORY THERAPY
     Dosage: RECTAL
     Route: 054
  4. ESOMEPRAZOLE (ESOMEPRAZOLE) TABLETS [Concomitant]
  5. INSULIN INSULATARD (INSULIN INJECTION, ISOPHANE) [Concomitant]
  6. ALENDRONATE (ALENDRONATE SODIUM) TABLETS [Concomitant]
  7. PREDNISOLONE [Concomitant]
  8. FOLIC ACID (FOLIC ACID) TABLETS [Concomitant]
  9. METHOTREXATE [Concomitant]

REACTIONS (4)
  - DEHYDRATION [None]
  - PALPITATIONS [None]
  - RENAL FAILURE [None]
  - SALMONELLA SEPSIS [None]
